FAERS Safety Report 7899077-0 (Version None)
Quarter: 2011Q4

REPORT INFORMATION
  Report Type: 
  Country: None (occurrence: None)
  Receive Date: 20111107
  Receipt Date: 20111101
  Transmission Date: 20120403
  Serious: Yes (Other)
  Sender: FDA-Public Use
  Company Number: US-ASTRAZENECA-2011SE60710

PATIENT
  Age: 4611 Day
  Sex: Male
  Weight: 42.9 kg

DRUGS (9)
  1. PREDNISONE [Concomitant]
     Dosage: 2X3 DAYS, 1 QDAY X 4DAYS
  2. FEXOFENADINE HCL [Concomitant]
     Route: 048
  3. ASMANEX TWISTHALER [Concomitant]
  4. XOPENEX HFA [Concomitant]
     Dosage: 45 MCG /ACT AERO, 2 PUFFS Q4H PRN
  5. PULMICORT [Suspect]
     Route: 055
  6. FLONASE [Concomitant]
     Dosage: 50 MC/ACT SUSP, 1-2 PUFFS EACH NOSTRIL Q DAY
  7. SINGULAIR [Concomitant]
     Route: 048
  8. SYMBICORT [Suspect]
     Indication: ASTHMA
     Dosage: 160 MCG OVER, DAILY
     Route: 055
     Dates: start: 20111005, end: 20111005
  9. XOPENEX [Concomitant]
     Dosage: 1 UD Q 4-6 H PRN VIA HHN

REACTIONS (14)
  - PRESYNCOPE [None]
  - BLOOD PRESSURE DECREASED [None]
  - DIARRHOEA [None]
  - RHINITIS ALLERGIC [None]
  - HYPOTENSION [None]
  - PALLOR [None]
  - DRUG DOSE OMISSION [None]
  - FALL [None]
  - DRUG HYPERSENSITIVITY [None]
  - HEADACHE [None]
  - DRUG INTOLERANCE [None]
  - DIZZINESS [None]
  - COUGH [None]
  - VOMITING [None]
